FAERS Safety Report 6613849-1 (Version None)
Quarter: 2010Q1

REPORT INFORMATION
  Report Type: 
  Country: None (occurrence: None)
  Receive Date: 20100304
  Receipt Date: 20100224
  Transmission Date: 20100710
  Serious: Yes (Other)
  Sender: FDA-Public Use
  Company Number: ES-BRISTOL-MYERS SQUIBB COMPANY-14993265

PATIENT
  Age: 67 Year
  Sex: Female

DRUGS (11)
  1. COAPROVEL TABS [Suspect]
     Route: 048
     Dates: start: 20070418
  2. CIPRALEX [Suspect]
     Route: 048
     Dates: start: 20080227
  3. PANTOPRAZOLE [Suspect]
     Route: 048
     Dates: start: 20080402
  4. SEROQUEL [Suspect]
     Indication: DEPRESSION
     Route: 048
     Dates: start: 20081202, end: 20091110
  5. GEMFIBROZIL [Suspect]
     Route: 048
     Dates: start: 20090622
  6. ALENDRONATE SODIUM [Concomitant]
     Route: 048
     Dates: start: 20080520
  7. ROPINIROLE HYDROCHLORIDE [Concomitant]
     Route: 048
     Dates: start: 20080121
  8. CHOLECALCIFEROL [Concomitant]
     Route: 048
     Dates: start: 20080604
  9. SIMVASTATIN [Concomitant]
     Route: 048
     Dates: start: 20080911
  10. TORASEMIDE [Concomitant]
     Route: 048
     Dates: start: 20080402
  11. ZOLPIDEM [Concomitant]
     Route: 048
     Dates: start: 20081226

REACTIONS (2)
  - BLINDNESS [None]
  - GLAUCOMA [None]
